FAERS Safety Report 9114573 (Version 1)
Quarter: 2013Q1

REPORT INFORMATION
  Report Type: Spontaneous
  Country: FR (occurrence: FR)
  Receive Date: 20130208
  Receipt Date: 20130208
  Transmission Date: 20140127
  Serious: Yes (Death)
  Sender: FDA-Public Use
  Company Number: FR-SANOFI-AVENTIS-2013SA008851

PATIENT
  Age: 76 Year
  Sex: Male

DRUGS (6)
  1. TAXOTERE [Suspect]
     Indication: LUNG NEOPLASM MALIGNANT
     Route: 042
     Dates: start: 20121026, end: 20121026
  2. TAXOTERE [Suspect]
     Indication: LUNG NEOPLASM MALIGNANT
     Route: 042
     Dates: start: 20121116, end: 20121116
  3. TAXOTERE [Suspect]
     Indication: LUNG NEOPLASM MALIGNANT
     Route: 042
     Dates: start: 20121207, end: 20121207
  4. KARDEGIC [Concomitant]
     Dosage: STRENGTH: 75 MG
     Route: 048
     Dates: end: 20121219
  5. AMLOR [Concomitant]
     Dosage: STRENGTH: 5 MG
     Route: 048
     Dates: end: 20121219
  6. BISOPROLOL [Concomitant]
     Dosage: STRENGTH: 10 MG
     Route: 048
     Dates: end: 20121219

REACTIONS (4)
  - Lung disorder [Fatal]
  - Productive cough [Fatal]
  - Dyspnoea [Fatal]
  - Lymphopenia [Fatal]
